FAERS Safety Report 11842899 (Version 1)
Quarter: 2015Q4

REPORT INFORMATION
  Report Type: Spontaneous
  Country: US (occurrence: US)
  Receive Date: 20151216
  Receipt Date: 20151216
  Transmission Date: 20160305
  Serious: No
  Sender: FDA-Public Use
  Company Number: US-PFIZER INC-2015439034

PATIENT
  Age: 91 Year
  Sex: Male
  Weight: 86 kg

DRUGS (1)
  1. ADVIL PM [Suspect]
     Active Substance: DIPHENHYDRAMINE CITRATE\IBUPROFEN
     Indication: SLEEP DISORDER
     Dosage: 1 DF, 1X/DAY AT NIGHT
     Route: 048
     Dates: start: 201512, end: 201512

REACTIONS (7)
  - Dysphagia [Recovered/Resolved]
  - Foreign body [Recovered/Resolved]
  - Product solubility abnormal [Recovered/Resolved]
  - Burning sensation [Recovered/Resolved]
  - Oropharyngeal pain [Recovered/Resolved]
  - Product physical issue [Unknown]
  - Sleep disorder [Recovered/Resolved]

NARRATIVE: CASE EVENT DATE: 201512
